FAERS Safety Report 21887894 (Version 1)
Quarter: 2023Q1

REPORT INFORMATION
  Report Type: Report from Study
  Country: US (occurrence: US)
  Receive Date: 20230120
  Receipt Date: 20230120
  Transmission Date: 20230417
  Serious: No
  Sender: FDA-Public Use
  Company Number: US-ABBVIE-4244686

PATIENT
  Sex: Female

DRUGS (2)
  1. HUMIRA [Suspect]
     Active Substance: ADALIMUMAB
     Indication: Psoriatic arthropathy
     Dosage: FREQUENCY TEXT: UNKNOWN?START DATE TEXT: UNKNOWN?STOP DATE TEXT: UNKNOWN
     Route: 058
  2. HUMIRA [Suspect]
     Active Substance: ADALIMUMAB
     Indication: Uveitis

REACTIONS (7)
  - Immunodeficiency [Unknown]
  - Urinary tract infection [Unknown]
  - Gastric disorder [Unknown]
  - Oral candidiasis [Unknown]
  - Malaise [Not Recovered/Not Resolved]
  - Infection [Unknown]
  - Unevaluable event [Unknown]
